FAERS Safety Report 9780095 (Version 1)
Quarter: 2013Q4

REPORT INFORMATION
  Report Type: Spontaneous
  Country: IT (occurrence: IT)
  Receive Date: 20131223
  Receipt Date: 20131223
  Transmission Date: 20140711
  Serious: Yes (Other)
  Sender: FDA-Public Use
  Company Number: IT-ACTAVIS-2013-23001

PATIENT
  Age: 65 Year
  Sex: Female
  Weight: 71 kg

DRUGS (5)
  1. OXALIPLATIN (UNKNOWN) [Suspect]
     Indication: COLON CANCER
     Dosage: 150 MG, CYCLICAL
     Route: 042
     Dates: start: 20131029, end: 20131107
  2. FLUOROURACIL (UNKNOWN) [Suspect]
     Indication: COLON CANCER
     Dosage: 700 MG, CYCLICAL
     Route: 040
     Dates: start: 20131029, end: 20131107
  3. FLUOROURACIL (UNKNOWN) [Suspect]
     Dosage: 4220 UNK, UNK
     Route: 040
     Dates: start: 20131029, end: 20131107
  4. LEVOFOLINIC ACID [Suspect]
     Indication: COLON CANCER
     Dosage: 350 MG, CYCLICAL
     Route: 042
     Dates: start: 20131029, end: 20131029
  5. IGROSELES [Suspect]
     Indication: HYPERTENSION
     Dosage: UNK
     Route: 065

REACTIONS (2)
  - Dyspnoea [Unknown]
  - Hypokalaemia [Unknown]
